FAERS Safety Report 8078428-0 (Version None)
Quarter: 2012Q1

REPORT INFORMATION
  Report Type: 
  Country: None (occurrence: None)
  Receive Date: 20120127
  Receipt Date: 20110131
  Transmission Date: 20120608
  Serious: No
  Sender: FDA-Public Use
  Company Number: US-ABBOTT-10P-163-0668029-00

PATIENT
  Sex: Male
  Weight: 102.15 kg

DRUGS (4)
  1. ZOLOFT [Concomitant]
     Indication: ANXIETY
  2. TYLENOL PM [Concomitant]
     Indication: INSOMNIA
  3. HUMIRA [Suspect]
     Indication: PSORIASIS
     Route: 058
     Dates: start: 20100601
  4. TOPICAL CREAM [Concomitant]
     Indication: PSORIASIS

REACTIONS (7)
  - DRUG DOSE OMISSION [None]
  - PRURITUS [None]
  - SKIN EXFOLIATION [None]
  - DEVICE MALFUNCTION [None]
  - ANXIETY [None]
  - PSORIASIS [None]
  - HAEMORRHAGE [None]
